FAERS Safety Report 6288530-1 (Version None)
Quarter: 2009Q3

REPORT INFORMATION
  Report Type: 
  Country: None (occurrence: None)
  Receive Date: 20090729
  Receipt Date: 20090717
  Transmission Date: 20100115
  Serious: Yes (Other)
  Sender: FDA-Public Use
  Company Number: US-ASTRAZENECA-2009SE05100

PATIENT
  Age: 83 Year
  Sex: Female

DRUGS (3)
  1. MEPIVACAINE HCL [Suspect]
     Indication: ANAESTHESIA PROCEDURE
     Route: 053
  2. CARBAMAZEPINE [Concomitant]
     Indication: CONVULSION
  3. PHENOBARBITAL [Concomitant]
     Indication: CONVULSION

REACTIONS (2)
  - BRADYCARDIA [None]
  - MUSCLE TWITCHING [None]
